FAERS Safety Report 24453154 (Version 2)
Quarter: 2024Q4

REPORT INFORMATION
  Report Type: Spontaneous
  Country: IE (occurrence: IE)
  Receive Date: 20241017
  Receipt Date: 20241018
  Transmission Date: 20250115
  Serious: No
  Sender: ROCHE
  Company Number: IE-SERVIER-S22008053

PATIENT
  Age: 26 Year
  Sex: Female

DRUGS (20)
  1. RITUXIMAB [Suspect]
     Active Substance: RITUXIMAB
     Indication: Follicular lymphoma
     Route: 041
  2. RITUXIMAB [Suspect]
     Active Substance: RITUXIMAB
     Indication: Diffuse large B-cell lymphoma
  3. OBINUTUZUMAB [Suspect]
     Active Substance: OBINUTUZUMAB
     Indication: Follicular lymphoma
     Route: 042
  4. OBINUTUZUMAB [Suspect]
     Active Substance: OBINUTUZUMAB
     Indication: Diffuse large B-cell lymphoma
  5. CYCLOPHOSPHAMIDE [Concomitant]
     Active Substance: CYCLOPHOSPHAMIDE
  6. DOXORUBICIN [Concomitant]
     Active Substance: DOXORUBICIN
  7. VINCRISTINE [Concomitant]
     Active Substance: VINCRISTINE
  8. PREDNISOLONE [Concomitant]
     Active Substance: PREDNISOLONE
  9. BENDAMUSTINE [Concomitant]
     Active Substance: BENDAMUSTINE
  10. ETOPOSIDE [Concomitant]
     Active Substance: ETOPOSIDE
  11. METHYLPREDNISOLONE [Concomitant]
     Active Substance: METHYLPREDNISOLONE
     Route: 065
  12. METHYLPREDNISOLONE [Concomitant]
     Active Substance: METHYLPREDNISOLONE
     Route: 042
     Dates: start: 202101
  13. CYTARABINE [Concomitant]
     Active Substance: CYTARABINE
  14. CISPLATIN [Concomitant]
     Active Substance: CISPLATIN
  15. LENALIDOMIDE [Concomitant]
     Active Substance: LENALIDOMIDE
  16. GEMCITABINE [Concomitant]
     Active Substance: GEMCITABINE
  17. IFOSFAMIDE [Concomitant]
     Active Substance: IFOSFAMIDE
  18. OXALIPLATIN [Concomitant]
     Active Substance: OXALIPLATIN
  19. DEXAMETHASONE [Concomitant]
     Active Substance: DEXAMETHASONE
  20. PIXANTRONE [Concomitant]
     Active Substance: PIXANTRONE

REACTIONS (1)
  - Infusion related reaction [Unknown]
